FAERS Safety Report 24767956 (Version 2)
Quarter: 2025Q3

REPORT INFORMATION
  Report Type: Spontaneous
  Country: US (occurrence: US)
  Receive Date: 20241223
  Receipt Date: 20250813
  Transmission Date: 20251020
  Serious: No
  Sender: INCYTE
  Company Number: US-EVENT-000754

PATIENT
  Age: 70 Year

DRUGS (1)
  1. OPZELURA [Suspect]
     Active Substance: RUXOLITINIB PHOSPHATE
     Indication: Dermatitis atopic
     Dosage: BID
     Route: 065

REACTIONS (2)
  - Product physical issue [Unknown]
  - Product dose omission issue [Unknown]
